FAERS Safety Report 5648831-4 (Version None)
Quarter: 2008Q1

REPORT INFORMATION
  Report Type: 
  Country: None (occurrence: None)
  Receive Date: 20080229
  Receipt Date: 20080225
  Transmission Date: 20080703
  Serious: Yes (Life-Threatening, Hospitalization)
  Sender: FDA-Public Use
  Company Number: SP01808

PATIENT
  Age: 68 Year
  Sex: Male

DRUGS (1)
  1. MOVIPREP [Suspect]
     Indication: BOWEL PREPARATION
     Dosage: 1 LIT. ORAL
     Route: 048
     Dates: start: 20080207, end: 20080207

REACTIONS (9)
  - ABDOMINAL PAIN [None]
  - ARTERIOSCLEROSIS [None]
  - DUODENITIS [None]
  - EMBOLISM [None]
  - GENERAL PHYSICAL HEALTH DETERIORATION [None]
  - INTESTINAL INFARCTION [None]
  - JEJUNITIS [None]
  - NECROTISING OESOPHAGITIS [None]
  - WHITE BLOOD CELL COUNT INCREASED [None]
